FAERS Safety Report 15483132 (Version 7)
Quarter: 2019Q1

REPORT INFORMATION
  Report Type: Spontaneous
  Country: NL (occurrence: NL)
  Receive Date: 20181010
  Receipt Date: 20190129
  Transmission Date: 20190417
  Serious: Yes (Hospitalization, Other)
  Sender: FDA-Public Use
  Company Number: NL-PFIZER INC-2018402609

PATIENT
  Age: 63 Year
  Sex: Male

DRUGS (15)
  1. SIMVASTATIN. [Interacting]
     Active Substance: SIMVASTATIN
     Indication: CARDIOVASCULAR EVENT PROPHYLAXIS
  2. CICLOSPORIN [Interacting]
     Active Substance: CYCLOSPORINE
     Dosage: 100 MG, 2X/DAY
     Dates: start: 2016
  3. CICLOSPORIN [Interacting]
     Active Substance: CYCLOSPORINE
     Dosage: 25 MG, 2X/DAY
     Dates: start: 201209
  4. VORICONAZOLE. [Suspect]
     Active Substance: VORICONAZOLE
     Indication: BRONCHOPULMONARY ASPERGILLOSIS
     Dosage: 200 MG, 2X/DAY
     Dates: start: 201602, end: 201603
  5. VORICONAZOLE. [Interacting]
     Active Substance: VORICONAZOLE
     Dosage: 75 MG, 2X/DAY
     Dates: start: 201602, end: 201603
  6. CICLOSPORIN [Interacting]
     Active Substance: CYCLOSPORINE
     Dosage: 25 MG, 1X/DAY
     Dates: start: 201209, end: 201209
  7. CICLOSPORIN [Interacting]
     Active Substance: CYCLOSPORINE
     Dosage: 75 MG, 1X/DAY
     Dates: start: 201204, end: 2012
  8. CLOPIDOGREL [Concomitant]
     Active Substance: CLOPIDOGREL BISULFATE
     Indication: PERCUTANEOUS CORONARY INTERVENTION
     Dosage: UNK
     Dates: start: 201503
  9. CICLOSPORIN [Interacting]
     Active Substance: CYCLOSPORINE
     Dosage: UNK
     Dates: start: 201204, end: 2012
  10. CICLOSPORIN [Interacting]
     Active Substance: CYCLOSPORINE
     Indication: CHRONIC GRAFT VERSUS HOST DISEASE
     Dosage: UNK (GRADUALLY DECREASED BECAUSE OF GVHD)
     Dates: start: 2012, end: 2012
  11. ASPIRIN [ACETYLSALICYLIC ACID] [Concomitant]
     Active Substance: ASPIRIN
     Indication: PERCUTANEOUS CORONARY INTERVENTION
     Dosage: UNK
     Dates: start: 201503
  12. CICLOSPORIN [Interacting]
     Active Substance: CYCLOSPORINE
     Dosage: 50 MG, 1X/DAY, GRADUALLY DECREASED TO 75 MG 2X/DAY
     Dates: start: 201209
  13. CICLOSPORIN [Interacting]
     Active Substance: CYCLOSPORINE
     Dosage: 75 MG, 2X/DAY
     Dates: start: 201305, end: 2016
  14. SIMVASTATIN. [Interacting]
     Active Substance: SIMVASTATIN
     Indication: PERCUTANEOUS CORONARY INTERVENTION
     Dosage: 40 MG, 1X/DAY
     Route: 048
     Dates: start: 201503, end: 201603
  15. CICLOSPORIN [Interacting]
     Active Substance: CYCLOSPORINE
     Dosage: 225 MG, 2X/DAY
     Dates: start: 201209, end: 2012

REACTIONS (3)
  - Rhabdomyolysis [Recovered/Resolved]
  - Blood creatinine increased [Unknown]
  - Drug interaction [Recovered/Resolved]

NARRATIVE: CASE EVENT DATE: 2016
